FAERS Safety Report 25902741 (Version 1)
Quarter: 2025Q4

REPORT INFORMATION
  Report Type: Spontaneous
  Country: EU (occurrence: EU)
  Receive Date: 20251009
  Receipt Date: 20251009
  Transmission Date: 20260118
  Serious: Yes (Other)
  Sender: MYLAN
  Company Number: EU-CHEPLA-2025011189

PATIENT
  Age: 73 Year
  Sex: Female

DRUGS (4)
  1. APIXABAN [Suspect]
     Active Substance: APIXABAN
     Indication: Product used for unknown indication
     Dosage: UNK
  2. HYDROXYUREA [Suspect]
     Active Substance: HYDROXYUREA
     Indication: Polycythaemia vera
     Dosage: 2 GRAM, QD
  3. HYDROXYUREA [Suspect]
     Active Substance: HYDROXYUREA
     Dosage: 3 GRAM, QD
  4. ASPIRIN [Suspect]
     Active Substance: ASPIRIN
     Indication: Polycythaemia vera
     Dosage: UNK

REACTIONS (3)
  - Myelosuppression [Unknown]
  - Nail pigmentation [Recovered/Resolved]
  - Drug intolerance [Unknown]
